FAERS Safety Report 4744115-7 (Version None)
Quarter: 2005Q3

REPORT INFORMATION
  Report Type: 
  Country: None (occurrence: None)
  Receive Date: 20050812
  Receipt Date: 20050803
  Transmission Date: 20060218
  Serious: Yes (Other)
  Sender: FDA-Public Use
  Company Number: DE-JNJFOC-20050305179

PATIENT
  Sex: Female
  Weight: 50 kg

DRUGS (10)
  1. GALANTAMINE HBR [Suspect]
     Indication: DEMENTIA ALZHEIMER'S TYPE
     Route: 048
     Dates: start: 20050310, end: 20050321
  2. PANTAZOL [Concomitant]
     Indication: GASTROINTESTINAL DISORDER THERAPY
     Route: 048
  3. KALINOR BRAUSE [Concomitant]
     Route: 048
  4. FOSINORM [Concomitant]
     Route: 048
  5. FRAXIPARIN [Concomitant]
     Indication: THROMBOSIS PROPHYLAXIS
     Route: 058
  6. LANTUS [Concomitant]
     Indication: DIABETES MELLITUS
     Route: 058
  7. LENOXIN [Concomitant]
     Route: 048
  8. FERROSANOL DUODENOL [Concomitant]
     Indication: IRON DEFICIENCY
     Route: 048
  9. LASIX [Concomitant]
     Route: 048
  10. LASIX [Concomitant]
     Route: 048

REACTIONS (4)
  - BRADYCARDIA [None]
  - CYANOSIS [None]
  - FALL [None]
  - HYPOTENSION [None]
